FAERS Safety Report 7586662-9 (Version None)
Quarter: 2011Q3

REPORT INFORMATION
  Report Type: 
  Country: None (occurrence: None)
  Receive Date: 20110701
  Receipt Date: 20110629
  Transmission Date: 20111222
  Serious: Yes (Life-Threatening, Hospitalization, Other)
  Sender: FDA-Public Use
  Company Number: US-ELI_LILLY_AND_COMPANY-US201002002847

PATIENT
  Sex: Female
  Weight: 101.59 kg

DRUGS (7)
  1. BYETTA [Suspect]
     Dosage: UNK, UNK
     Dates: start: 20060601, end: 20061201
  2. ZOCOR [Concomitant]
  3. PREVACID [Concomitant]
  4. CALCIUM D /00944201/ [Concomitant]
     Dates: start: 20040101
  5. GLUCOPHAGE [Concomitant]
  6. ACTONEL [Concomitant]
     Dates: start: 20040101
  7. COZAAR [Concomitant]

REACTIONS (8)
  - RESPIRATORY FAILURE [None]
  - RENAL FAILURE [None]
  - PSEUDOMONAL SEPSIS [None]
  - HYPOKALAEMIA [None]
  - MULTI-ORGAN FAILURE [None]
  - HYPOMAGNESAEMIA [None]
  - GLOMERULONEPHRITIS [None]
  - ATRIAL FLUTTER [None]
